FAERS Safety Report 11926787 (Version 3)
Quarter: 2016Q4

REPORT INFORMATION
  Report Type: Spontaneous
  Country: FR (occurrence: FR)
  Receive Date: 20160119
  Receipt Date: 20161109
  Transmission Date: 20170206
  Serious: Yes (Death, Other)
  Sender: FDA-Public Use
  Company Number: FR-PFIZER INC-2016016529

PATIENT
  Age: 79 Year
  Sex: Female

DRUGS (12)
  1. DOLIPRANE [Suspect]
     Active Substance: ACETAMINOPHEN
     Indication: PAIN
     Dosage: 1 G, 3X/DAY (1 G,MORNING. MIDDAY, EVENING)
     Route: 048
  2. LORAZEPAM MYLAN [Suspect]
     Active Substance: LORAZEPAM
     Dosage: 2.5 MG, DAILY
     Route: 048
     Dates: start: 20151207, end: 20151214
  3. PLAQUENIL /00072602/ [Suspect]
     Active Substance: HYDROXYCHLOROQUINE DIPHOSPHATE
     Indication: RHEUMATOID ARTHRITIS
     Dosage: 200 MG, 2X/DAY (200 MG,MORNING, EVENING)
     Route: 048
  4. OXYCONTIN [Suspect]
     Active Substance: OXYCODONE HYDROCHLORIDE
     Indication: PAIN
     Dosage: 10 MG, 2X/DAY (1 DOSAGE FORM, MORNING, EVENING)
     Route: 048
     Dates: start: 20151207, end: 20151211
  5. AMLODIPINE EG [Suspect]
     Active Substance: AMLODIPINE BESYLATE
     Dosage: 10 MG, DAILY
     Route: 048
     Dates: start: 20151207
  6. AMOXICILLINE/ACIDE CLAVULANIQUE EG [Concomitant]
     Dosage: UNK
     Route: 065
     Dates: start: 20151209, end: 20151211
  7. OXYNORM [Suspect]
     Active Substance: OXYCODONE HYDROCHLORIDE
     Indication: PAIN
     Dosage: 5 MG, 3X/DAY
     Route: 065
     Dates: start: 20151207, end: 20151211
  8. LANSOPRAZOLE EG [Suspect]
     Active Substance: LANSOPRAZOLE
     Dosage: 15 MG, DAILY
     Route: 048
     Dates: start: 20151207, end: 20151214
  9. SALAZOPYRINE [Suspect]
     Active Substance: SULFASALAZINE
     Indication: RHEUMATOID ARTHRITIS
     Dosage: 1 G, 3X/DAY (1 G,MORNING, MIDDAY, EVENING)
     Route: 048
  10. CALTRATE WITH VITAMIN D [Suspect]
     Active Substance: CALCIUM CARBONATE\CHOLECALCIFEROL
     Dosage: 1 DF (600 MG/400 IU ) MORNING, EVENING
     Route: 048
  11. IMETH [Suspect]
     Active Substance: METHOTREXATE SODIUM
     Indication: RHEUMATOID ARTHRITIS
     Dosage: 10 MG, WEEKLY
     Route: 048
  12. RISEDRONATE EG [Suspect]
     Active Substance: RISEDRONATE SODIUM
     Dosage: 35 MG, WEEKLY
     Route: 048

REACTIONS (13)
  - General physical health deterioration [Fatal]
  - Pulmonary sepsis [Not Recovered/Not Resolved]
  - Erysipelas [Unknown]
  - Adrenal insufficiency [Unknown]
  - Pneumonia [Unknown]
  - Abdominal pain upper [Unknown]
  - Vomiting [Unknown]
  - Abdominal rigidity [Unknown]
  - Pancytopenia [Fatal]
  - Oral fungal infection [Unknown]
  - Purpura [Unknown]
  - Skin discolouration [Unknown]
  - Shock [Fatal]

NARRATIVE: CASE EVENT DATE: 201512
